FAERS Safety Report 25067240 (Version 1)
Quarter: 2025Q1

REPORT INFORMATION
  Report Type: Spontaneous
  Country: GB (occurrence: None)
  Receive Date: 20250312
  Receipt Date: 20250312
  Transmission Date: 20250408
  Serious: Yes (Hospitalization)
  Sender: CMP PHARMA
  Company Number: GB-CMPPHARMA-000488

PATIENT
  Age: 65 Year
  Sex: Female

DRUGS (4)
  1. ATORVALIQ [Suspect]
     Active Substance: ATORVASTATIN CALCIUM TRIHYDRATE
     Indication: Product used for unknown indication
     Dosage: EVERY NIGHT
  2. ASPIRIN [Concomitant]
     Active Substance: ASPIRIN
  3. TICAGRELOR [Concomitant]
     Active Substance: TICAGRELOR
  4. INSULIN NOS [Concomitant]
     Active Substance: INSULIN NOS
     Indication: Type 2 diabetes mellitus

REACTIONS (2)
  - Immune-mediated myositis [Recovering/Resolving]
  - Troponin increased [Recovering/Resolving]
